FAERS Safety Report 6518649-9 (Version None)
Quarter: 2009Q4

REPORT INFORMATION
  Report Type: 
  Country: None (occurrence: None)
  Receive Date: 20091228
  Receipt Date: 20091215
  Transmission Date: 20100525
  Serious: Yes (Death)
  Sender: FDA-Public Use
  Company Number: US-ROCHE-670382

PATIENT
  Sex: Male
  Weight: 88.5 kg

DRUGS (1)
  1. MYCOPHENOLATE MOFETIL [Suspect]
     Route: 048
     Dates: start: 20090721, end: 20091120

REACTIONS (2)
  - FALL [None]
  - SUBDURAL HAEMATOMA [None]
